FAERS Safety Report 13327395 (Version 1)
Quarter: 2017Q1

REPORT INFORMATION
  Report Type: Spontaneous
  Country: US (occurrence: US)
  Receive Date: 20170313
  Receipt Date: 20170313
  Transmission Date: 20170428
  Serious: No
  Sender: FDA-Public Use
  Company Number: US-JNJFOC-20161221799

PATIENT
  Age: 74 Year
  Sex: Male
  Weight: 70.76 kg

DRUGS (2)
  1. MENS ROGAINE EXTRA STRENGTH [Suspect]
     Active Substance: MINOXIDIL
     Route: 061
  2. MENS ROGAINE EXTRA STRENGTH [Suspect]
     Active Substance: MINOXIDIL
     Indication: ALOPECIA
     Route: 061
     Dates: start: 20161220, end: 20161221

REACTIONS (2)
  - Burning sensation [Not Recovered/Not Resolved]
  - Pain of skin [Not Recovered/Not Resolved]

NARRATIVE: CASE EVENT DATE: 20161221
